FAERS Safety Report 7488801-7 (Version None)
Quarter: 2011Q2

REPORT INFORMATION
  Report Type: 
  Country: None (occurrence: None)
  Receive Date: 20110518
  Receipt Date: 20110509
  Transmission Date: 20111010
  Serious: Yes (Death, Other)
  Sender: FDA-Public Use
  Company Number: CZ-GENZYME-CLOF-1000830

PATIENT
  Sex: Female
  Weight: 67 kg

DRUGS (6)
  1. EVOLTRA [Suspect]
     Indication: ACUTE MYELOID LEUKAEMIA
     Dosage: 22.5 MG/M2, QDX5
     Route: 042
     Dates: start: 20090714, end: 20090718
  2. ZOFRAN [Concomitant]
     Indication: PROPHYLAXIS
     Dosage: 8 MG, QDX5
     Route: 065
     Dates: start: 20090101, end: 20090101
  3. IDARUBICIN HYDROCHLORIDE [Suspect]
     Indication: ACUTE MYELOID LEUKAEMIA
     Dosage: 6 MG/M2, QDX3
     Route: 042
     Dates: start: 20090714, end: 20090716
  4. HYDROCORTISONE [Concomitant]
     Indication: PROPHYLAXIS
     Dosage: 100 MG, QDX5
     Route: 042
     Dates: start: 20090101, end: 20090101
  5. ZYRTEC [Concomitant]
     Indication: PROPHYLAXIS
     Dosage: 10 MG, QDX5
     Route: 048
     Dates: start: 20090101, end: 20090101
  6. ACETAMINOPHEN [Concomitant]
     Indication: PROPHYLAXIS
     Dosage: 1000 MG, QDX5
     Route: 048
     Dates: start: 20090101, end: 20090101

REACTIONS (5)
  - ASPERGILLOSIS [None]
  - THROMBOCYTOPENIA [None]
  - FEBRILE NEUTROPENIA [None]
  - NEUTROPENIA [None]
  - DISEASE PROGRESSION [None]
